FAERS Safety Report 5650838-8 (Version None)
Quarter: 2008Q1

REPORT INFORMATION
  Report Type: 
  Country: None (occurrence: None)
  Receive Date: 20080305
  Receipt Date: 20080227
  Transmission Date: 20080703
  Serious: Yes (Other)
  Sender: FDA-Public Use
  Company Number: US-JNJFOC-20080207205

PATIENT
  Age: 32 Year
  Sex: Female

DRUGS (1)
  1. ORTHO TRI-CYCLEN [Suspect]
     Indication: CONTRACEPTION

REACTIONS (2)
  - MOOD SWINGS [None]
  - SYSTEMIC LUPUS ERYTHEMATOSUS [None]
